FAERS Safety Report 24580120 (Version 1)
Quarter: 2024Q4

REPORT INFORMATION
  Report Type: Report from Study
  Country: CA (occurrence: CA)
  Receive Date: 20241105
  Receipt Date: 20241105
  Transmission Date: 20250115
  Serious: Yes (Other)
  Sender: TAKEDA
  Company Number: CA-TAKEDA-2024TUS040558

PATIENT
  Age: 49 Year
  Sex: Male

DRUGS (6)
  1. VEDOLIZUMAB [Suspect]
     Active Substance: VEDOLIZUMAB
     Indication: Colitis ulcerative
     Dosage: 300 MILLIGRAM
     Route: 042
     Dates: start: 20240424
  2. VEDOLIZUMAB [Suspect]
     Active Substance: VEDOLIZUMAB
     Dosage: 300 MILLIGRAM
     Route: 042
  3. VEDOLIZUMAB [Suspect]
     Active Substance: VEDOLIZUMAB
     Dosage: 300 MILLIGRAM
     Route: 042
  4. MESALAMINE [Concomitant]
     Active Substance: MESALAMINE
     Dosage: UNK
     Dates: start: 202306
  5. PREVOST [Concomitant]
     Dosage: UNK
  6. METFORMIN [Concomitant]
     Active Substance: METFORMIN HYDROCHLORIDE
     Dosage: UNK

REACTIONS (19)
  - Colitis ulcerative [Unknown]
  - Nasal discomfort [Unknown]
  - Sinus pain [Unknown]
  - Faeces soft [Unknown]
  - Toothache [Unknown]
  - Oral herpes [Unknown]
  - Nasal discharge discolouration [Unknown]
  - Tooth infection [Unknown]
  - Anxiety [Unknown]
  - Frequent bowel movements [Unknown]
  - Head injury [Unknown]
  - Rhinorrhoea [Unknown]
  - Abdominal pain [Unknown]
  - Epistaxis [Unknown]
  - Nasal congestion [Unknown]
  - Acne [Unknown]
  - Arthralgia [Recovering/Resolving]
  - Headache [Unknown]
  - Fatigue [Unknown]

NARRATIVE: CASE EVENT DATE: 20240923
